FAERS Safety Report 25888268 (Version 2)
Quarter: 2025Q4

REPORT INFORMATION
  Report Type: Spontaneous
  Country: US (occurrence: US)
  Receive Date: 20251007
  Receipt Date: 20251008
  Transmission Date: 20260118
  Serious: Yes (Hospitalization, Other)
  Sender: SANOFI AVENTIS
  Company Number: US-SA-2025SA294672

PATIENT
  Age: 66 Year
  Sex: Female

DRUGS (1)
  1. DUPIXENT [Suspect]
     Active Substance: DUPILUMAB
     Dosage: 300 MG, QOW
     Route: 058
     Dates: end: 202509

REACTIONS (4)
  - Hallucination [Unknown]
  - Drug detoxification [Recovering/Resolving]
  - Paranoia [Unknown]
  - Product storage error [Unknown]

NARRATIVE: CASE EVENT DATE: 20250901
